FAERS Safety Report 5341541-2 (Version None)
Quarter: 2007Q2

REPORT INFORMATION
  Report Type: 
  Country: None (occurrence: None)
  Receive Date: 20070530
  Receipt Date: 20070515
  Transmission Date: 20071010
  Serious: Yes (Life-Threatening, Hospitalization)
  Sender: FDA-Public Use
  Company Number: MC200700231

PATIENT
  Age: 58 Year
  Sex: Male
  Weight: 80 kg

DRUGS (12)
  1. ANGIOMAX [Suspect]
     Dosage: SEE IMAGE
     Dates: start: 20060622, end: 20060622
  2. ANGIOMAX [Suspect]
     Dosage: SEE IMAGE
     Dates: start: 20060622, end: 20060622
  3. POLOCARD (ACETYLSALICYLIC ACID) [Concomitant]
  4. PLAVIX [Concomitant]
  5. METOCARD (METOPROLOL TARTRATE) [Concomitant]
  6. PRESTARIUM /00790701/ (PERINDOPRIL) [Concomitant]
  7. SPIRONOLACTONE [Concomitant]
  8. HYDROCHLOROTHIAZIDE [Concomitant]
  9. KALDYUM (POTASSIUM CHLORIDE) [Concomitant]
  10. ZOCOR [Concomitant]
  11. ACTRAPID /00646001/ (INSULIN HUMAN) [Concomitant]
  12. INSULATARD /00030504/ (INSULIN INJECTION, ISOPHANE) [Concomitant]

REACTIONS (4)
  - ACUTE CORONARY SYNDROME [None]
  - ELECTROCARDIOGRAM ST SEGMENT DEPRESSION [None]
  - IN-STENT CORONARY ARTERY RESTENOSIS [None]
  - MYOCARDIAL ISCHAEMIA [None]
